FAERS Safety Report 7425433-0 (Version None)
Quarter: 2011Q2

REPORT INFORMATION
  Report Type: 
  Country: None (occurrence: None)
  Receive Date: 20110420
  Receipt Date: 20110414
  Transmission Date: 20111010
  Serious: Yes (Life-Threatening, Other)
  Sender: FDA-Public Use
  Company Number: JP-ASTELLAS-2010JP007527

PATIENT
  Sex: Female
  Weight: 10 kg

DRUGS (100)
  1. ANTI-THYMOCYTE GLOBULIN NOS [Concomitant]
     Dosage: UNK
     Route: 065
  2. URSO 250 [Concomitant]
     Dosage: UNK
     Route: 048
     Dates: start: 20091112
  3. AMLODIN [Concomitant]
     Dosage: UNK
     Route: 048
     Dates: start: 20091109, end: 20091210
  4. ALIMEZINE [Concomitant]
     Dosage: UNK
     Route: 048
     Dates: start: 20091111, end: 20091208
  5. MEPTIN [Concomitant]
     Dosage: UNK
     Route: 048
     Dates: start: 20091113, end: 20091115
  6. PERDIPINE [Concomitant]
     Dosage: UNK
     Route: 042
     Dates: end: 20091215
  7. ATARAX [Concomitant]
     Dosage: UNK
     Route: 042
     Dates: start: 20091206, end: 20091211
  8. MORPHINE HYDROCHLORIDE [Concomitant]
     Dosage: UNK
     Route: 042
     Dates: start: 20091121, end: 20091208
  9. IMMUNE GLOBULIN INTRAVENOUS (HUMAN) [Concomitant]
     Dosage: UNK
     Route: 042
     Dates: start: 20091225, end: 20091226
  10. POTASSIUM CHLORIDE [Concomitant]
     Dosage: UNK
     Route: 041
     Dates: start: 20091217, end: 20091221
  11. ENDOXAN [Suspect]
     Dosage: 700 MG, UNKNOWN/D
     Route: 041
     Dates: start: 20091112, end: 20091113
  12. AZUNOL [Concomitant]
     Dosage: UNK
     Route: 061
     Dates: start: 20091119, end: 20091120
  13. BROACT [Concomitant]
     Dosage: UNK
     Route: 042
     Dates: end: 20091113
  14. SOLDEM 1 [Concomitant]
     Dosage: UNK
     Route: 042
     Dates: end: 20091221
  15. ATARAX [Concomitant]
     Dosage: UNK
     Route: 042
     Dates: start: 20091109, end: 20091109
  16. ATARAX [Concomitant]
     Dosage: UNK
     Route: 042
     Dates: start: 20091123, end: 20091123
  17. ATARAX [Concomitant]
     Dosage: UNK
     Route: 042
     Dates: start: 20091126, end: 20091126
  18. ATARAX [Concomitant]
     Dosage: UNK
     Route: 042
     Dates: start: 20091129, end: 20091201
  19. FULCALIQ [Concomitant]
     Dosage: UNK
     Route: 042
     Dates: start: 20100104
  20. IMMUNE GLOBULIN INTRAVENOUS (HUMAN) [Concomitant]
     Dosage: UNK
     Route: 042
     Dates: start: 20091201, end: 20091201
  21. IMMUNE GLOBULIN INTRAVENOUS (HUMAN) [Concomitant]
     Dosage: UNK
     Route: 042
     Dates: start: 20091208, end: 20091208
  22. IMMUNE GLOBULIN INTRAVENOUS (HUMAN) [Concomitant]
     Dosage: UNK
     Route: 042
     Dates: start: 20091231, end: 20091231
  23. LASIX [Concomitant]
     Dosage: UNK
     Route: 042
     Dates: start: 20091129, end: 20091129
  24. VEPESID [Suspect]
     Dosage: UNK
     Route: 041
     Dates: start: 20091111, end: 20091111
  25. MTX [Concomitant]
     Indication: PROPHYLAXIS AGAINST GRAFT VERSUS HOST DISEASE
     Route: 065
  26. URSO 250 [Concomitant]
     Dosage: UNK
     Route: 048
     Dates: end: 20091109
  27. TEPRENONE [Concomitant]
     Dosage: UNK
     Route: 048
     Dates: end: 20091104
  28. PROPETO [Concomitant]
     Dosage: UNK
     Route: 065
     Dates: start: 20091122, end: 20091122
  29. NEW LECICARBON [Concomitant]
     Dosage: UNK
     Route: 054
     Dates: start: 20091206, end: 20091208
  30. SOLDEM 3A [Concomitant]
     Dosage: UNK
     Route: 042
     Dates: end: 20091118
  31. SOLDEM 3A [Concomitant]
     Dosage: UNK
     Route: 042
     Dates: start: 20091221, end: 20091222
  32. SOL-MELCORT [Concomitant]
     Dosage: UNK
     Route: 041
     Dates: start: 20091223, end: 20091223
  33. ATARAX [Concomitant]
     Dosage: UNK
     Route: 042
     Dates: start: 20091121, end: 20091121
  34. METHOTREXATE [Concomitant]
     Dosage: UNK
     Route: 041
     Dates: start: 20091119, end: 20091119
  35. METHOTREXATE [Concomitant]
     Dosage: UNK
     Route: 041
     Dates: start: 20091122, end: 20091122
  36. METHOTREXATE [Concomitant]
     Dosage: UNK
     Route: 041
     Dates: start: 20091128, end: 20091128
  37. WATER FOR INJECTION [Concomitant]
     Dosage: UNK
     Route: 041
     Dates: start: 20091209
  38. ACIROVEC [Concomitant]
     Dosage: UNK
     Route: 041
     Dates: start: 20091117, end: 20091203
  39. TIENAM [Concomitant]
     Dosage: UNK
     Route: 041
     Dates: start: 20091123, end: 20091201
  40. VFEND [Concomitant]
     Dosage: UNK
     Route: 041
     Dates: start: 20091128, end: 20091207
  41. POTASSIUM CHLORIDE [Concomitant]
     Dosage: UNK
     Route: 041
     Dates: start: 20091207, end: 20091209
  42. BLOPRESS [Concomitant]
     Dosage: UNK
     Route: 048
     Dates: end: 20091213
  43. PROPETO [Concomitant]
     Dosage: UNK
     Route: 065
     Dates: start: 20091203, end: 20091203
  44. WHITE PETROLEUM [Concomitant]
     Dosage: UNK
     Route: 065
     Dates: start: 20100104
  45. SEISHOKU [Concomitant]
     Route: 042
  46. SOLDEM 1 [Concomitant]
     Dosage: UNK
     Route: 042
     Dates: start: 20100104
  47. TARGOCID [Concomitant]
     Dosage: UNK
     Route: 041
     Dates: start: 20091223, end: 20091229
  48. CARBENIN [Concomitant]
     Dosage: UNK
     Route: 041
     Dates: start: 20091113, end: 20091123
  49. HAPTOGLOBINS [Concomitant]
     Dosage: UNK
     Route: 041
     Dates: start: 20091116, end: 20091116
  50. HYDROCORTONE [Concomitant]
     Dosage: UNK
     Route: 041
     Dates: start: 20091116, end: 20091116
  51. GASTER [Concomitant]
     Dosage: UNK
     Route: 042
     Dates: start: 20091121, end: 20091208
  52. CALCICOL [Concomitant]
     Dosage: UNK
     Route: 042
     Dates: start: 20091207, end: 20091208
  53. WHITE PETROLEUM [Concomitant]
     Dosage: UNK
     Route: 065
     Dates: start: 20091119, end: 20091120
  54. AZUNOL [Concomitant]
     Dosage: UNK
     Route: 061
     Dates: start: 20091122, end: 20091122
  55. DEXART [Concomitant]
     Dosage: UNK
     Route: 042
     Dates: end: 20091110
  56. POLARAMINE [Concomitant]
     Dosage: UNK
     Route: 042
     Dates: start: 20091116, end: 20091116
  57. KYTRIL [Concomitant]
     Dosage: UNK
     Route: 041
     Dates: start: 20091107, end: 20091114
  58. ATARAX [Concomitant]
     Dosage: UNK
     Route: 042
     Dates: start: 20091111, end: 20091112
  59. VOLVIX [Concomitant]
     Dosage: UNK
     Route: 042
     Dates: start: 20100104
  60. IMMUNE GLOBULIN INTRAVENOUS (HUMAN) [Concomitant]
     Dosage: UNK
     Route: 042
     Dates: start: 20091124, end: 20091125
  61. NEUTROGIN [Concomitant]
     Dosage: UNK
     Route: 042
     Dates: start: 20091121, end: 20091210
  62. LASIX [Concomitant]
     Dosage: UNK
     Route: 042
     Dates: start: 20091127, end: 20091127
  63. FOSCAVIR [Concomitant]
     Dosage: UNK
     Route: 041
     Dates: start: 20091203, end: 20091210
  64. AMLODIN [Concomitant]
     Dosage: UNK
     Route: 048
     Dates: start: 20091220, end: 20091220
  65. POLARAMINE [Concomitant]
     Dosage: UNK
     Route: 042
     Dates: end: 20091106
  66. NOVO HEPARIN [Concomitant]
     Dosage: UNK
     Route: 042
     Dates: end: 20100103
  67. WATER FOR INJECTION [Concomitant]
     Dosage: UNK
     Route: 041
     Dates: start: 20091117, end: 20091117
  68. WATER FOR INJECTION [Concomitant]
     Dosage: UNK
     Route: 041
     Dates: start: 20091119, end: 20091119
  69. WATER FOR INJECTION [Concomitant]
     Dosage: UNK
     Route: 041
     Dates: start: 20091122, end: 20091122
  70. WATER FOR INJECTION [Concomitant]
     Dosage: UNK
     Route: 041
     Dates: start: 20091127, end: 20091127
  71. FULCALIQ [Concomitant]
     Dosage: UNK
     Route: 042
     Dates: start: 20091118, end: 20091228
  72. MORPHINE HYDROCHLORIDE [Concomitant]
     Dosage: UNK
     Route: 042
     Dates: start: 20091119, end: 20091119
  73. IMMUNE GLOBULIN INTRAVENOUS (HUMAN) [Concomitant]
     Dosage: UNK
     Route: 042
     Dates: start: 20091120, end: 20091120
  74. LASIX [Concomitant]
     Dosage: UNK
     Route: 042
     Dates: start: 20091201, end: 20091204
  75. CIPROFLOXACIN HCL [Concomitant]
     Dosage: UNK
     Route: 041
     Dates: start: 20091216, end: 20091216
  76. CIPROFLOXACIN HCL [Concomitant]
     Dosage: UNK
     Route: 041
     Dates: start: 20091223, end: 20091223
  77. PROGRAF [Suspect]
     Indication: PROPHYLAXIS AGAINST GRAFT VERSUS HOST DISEASE
     Dosage: 5 MG, CONTINUOUS
     Route: 041
     Dates: start: 20091115, end: 20091210
  78. PROPETO [Concomitant]
     Dosage: UNK
     Route: 065
     Dates: start: 20091110, end: 20091110
  79. SOLDEM 1 [Concomitant]
     Dosage: UNK
     Route: 042
     Dates: start: 20091223, end: 20091226
  80. UROMITEXAN [Concomitant]
     Dosage: UNK
     Route: 042
     Dates: start: 20091112, end: 20091113
  81. TARGOCID [Concomitant]
     Dosage: UNK
     Route: 041
     Dates: start: 20091113, end: 20091208
  82. METHOTREXATE [Concomitant]
     Dosage: UNK
     Route: 041
     Dates: start: 20091117, end: 20091117
  83. VOLVIX [Concomitant]
     Dosage: UNK
     Route: 042
     Dates: start: 20091118, end: 20091213
  84. GASTER [Concomitant]
     Dosage: UNK
     Route: 042
     Dates: start: 20091210, end: 20091210
  85. MINOCYCLINE HCL [Concomitant]
     Dosage: UNK
     Route: 042
     Dates: start: 20091130, end: 20091201
  86. AMIKACIN SULFATE [Concomitant]
     Dosage: UNK
     Route: 042
     Dates: start: 20091201, end: 20091207
  87. CIPROFLOXACIN HCL [Concomitant]
     Dosage: UNK
     Route: 041
     Dates: start: 20091204, end: 20091210
  88. BUSULFEX [Suspect]
     Dosage: UNK
     Route: 041
     Dates: start: 20091107, end: 20091111
  89. GABAPEN [Concomitant]
     Dosage: UNK
     Route: 048
     Dates: end: 20091213
  90. TEPRENONE [Concomitant]
     Dosage: UNK
     Route: 048
     Dates: start: 20091109
  91. PROPETO [Concomitant]
     Dosage: UNK
     Route: 065
     Dates: start: 20091127, end: 20091127
  92. PROPETO [Concomitant]
     Dosage: UNK
     Route: 065
     Dates: start: 20091211, end: 20091211
  93. MUCODYNE [Concomitant]
     Dosage: UNK
     Route: 048
     Dates: start: 20091111, end: 20091208
  94. PERDIPINE [Concomitant]
     Dosage: UNK
     Route: 042
     Dates: start: 20091221, end: 20100101
  95. SOL-MELCORT [Concomitant]
     Dosage: UNK
     Route: 041
     Dates: end: 20091106
  96. FUNGUARD [Concomitant]
     Dosage: UNK
     Route: 041
     Dates: start: 20091105, end: 20091128
  97. ATARAX [Concomitant]
     Dosage: UNK
     Route: 042
     Dates: start: 20091218, end: 20091218
  98. WATER FOR INJECTION [Concomitant]
     Dosage: UNK
     Route: 041
     Dates: start: 20091205, end: 20091207
  99. LASIX [Concomitant]
     Dosage: UNK
     Route: 042
     Dates: start: 20091206
  100. CIPROFLOXACIN HCL [Concomitant]
     Dosage: UNK
     Route: 041
     Dates: start: 20091229, end: 20091229

REACTIONS (4)
  - VENOOCCLUSIVE DISEASE [None]
  - DRUG INEFFECTIVE [None]
  - ACUTE GRAFT VERSUS HOST DISEASE IN LIVER [None]
  - THROMBOTIC MICROANGIOPATHY [None]
